FAERS Safety Report 12160059 (Version 1)
Quarter: 2016Q1

REPORT INFORMATION
  Report Type: Spontaneous
  Country: US (occurrence: US)
  Receive Date: 20160308
  Receipt Date: 20160308
  Transmission Date: 20160526
  Serious: No
  Sender: FDA-Public Use
  Company Number: US-SA-2015SA206738

PATIENT
  Age: 18 Year
  Sex: Male

DRUGS (2)
  1. ELITEK [Suspect]
     Active Substance: RASBURICASE
     Dosage: DOSE/FREQUENCY-6 MG WHICH WAS GIVEN AS OF 4 OF THE 1.5MG/ML VIALS
     Route: 065
     Dates: start: 20151201, end: 20151201
  2. ELITEK [Suspect]
     Active Substance: RASBURICASE
     Dosage: DOSE/FREQUENCY-7.5 MG WAS GIVEN AS 5 VIALS OF 1.5MG/DL
     Route: 065
     Dates: start: 20151202

REACTIONS (1)
  - Blood uric acid increased [Not Recovered/Not Resolved]
